FAERS Safety Report 8382362-6 (Version None)
Quarter: 2012Q2

REPORT INFORMATION
  Report Type: 
  Country: None (occurrence: None)
  Receive Date: 20120524
  Receipt Date: 20120518
  Transmission Date: 20120825
  Serious: Yes (Other)
  Sender: FDA-Public Use
  Company Number: US-ELI_LILLY_AND_COMPANY-US201202007282

PATIENT
  Sex: Male

DRUGS (2)
  1. DDAVP [Concomitant]
  2. HUMATROPE [Suspect]
     Indication: BODY HEIGHT BELOW NORMAL
     Dosage: 3.2 MG, SIX DAYS A WEEK
     Dates: start: 20030301

REACTIONS (3)
  - BONE LESION [None]
  - LANGERHANS' CELL HISTIOCYTOSIS [None]
  - CENTRAL NERVOUS SYSTEM LESION [None]
